FAERS Safety Report 20874422 (Version 1)
Quarter: 2022Q2

REPORT INFORMATION
  Report Type: Spontaneous
  Country: US (occurrence: US)
  Receive Date: 20220525
  Receipt Date: 20220525
  Transmission Date: 20220721
  Serious: No
  Sender: FDA-Public Use
  Company Number: US-GALDERMA-US2022006245

PATIENT

DRUGS (11)
  1. PROACTIV MD ADAPALENE ACNE TREATMENT [Suspect]
     Active Substance: ADAPALENE
     Indication: Acne
     Dosage: 1 DOSAGE FORM, DID NOT FOLLOW THE DIRECTIONS
     Route: 061
     Dates: start: 202112
  2. PROACTIV MD ADAPALENE ACNE TREATMENT [Suspect]
     Active Substance: ADAPALENE
     Dosage: 1 DOSAGE FORM
     Route: 061
     Dates: end: 202205
  3. Proactiv MD Ultra Gentle Cleanser [Concomitant]
     Indication: Acne
     Dosage: 1 DOSAGE FORM, DID NOT FOLLOW THE DIRECTIONS
     Route: 061
     Dates: start: 202112
  4. Proactiv MD Ultra Gentle Cleanser [Concomitant]
     Dosage: 1 DOSAGE FORM, BID
     Route: 061
     Dates: end: 202205
  5. Proactiv MD Ultra Hydrating Moisturizer [Concomitant]
     Indication: Acne
     Dosage: 1 DOSAGE FORM, DID NOT FOLLOW THE DIRECTIONS
     Route: 061
     Dates: start: 202112
  6. Proactiv MD Ultra Hydrating Moisturizer [Concomitant]
     Dosage: 1 DOSAGE FORM, BID
     Route: 061
     Dates: end: 202205
  7. PROACTIV ACNE BODY WASH [Concomitant]
     Active Substance: SALICYLIC ACID
     Indication: Acne
     Dosage: 1 DOSAGE FORM, DID NOT FOLLOW THE DIRECTIONS
     Route: 061
     Dates: start: 202112
  8. PROACTIV ACNE BODY WASH [Concomitant]
     Active Substance: SALICYLIC ACID
     Dosage: 1 DOSAGE FORM, BID
     Route: 061
     Dates: end: 202205
  9. Proactiv Amazonian Clay Mask [Concomitant]
     Indication: Acne
     Dosage: 1 DOSAGE FORM, DID NOT FOLLOW THE DIRECTIONS
     Route: 061
     Dates: start: 202112
  10. Proactiv Amazonian Clay Mask [Concomitant]
     Dosage: 1 DOSAGE FORM, BID
     Route: 061
     Dates: end: 202205
  11. KEPPRA [Concomitant]
     Active Substance: LEVETIRACETAM
     Indication: Product used for unknown indication
     Route: 065

REACTIONS (9)
  - Erythema [Recovering/Resolving]
  - Acne cystic [Recovering/Resolving]
  - Skin mass [Recovering/Resolving]
  - Skin exfoliation [Recovering/Resolving]
  - Dry skin [Recovering/Resolving]
  - Pain of skin [Recovering/Resolving]
  - Skin burning sensation [Recovering/Resolving]
  - Drug ineffective [Unknown]
  - Product use issue [Recovered/Resolved]

NARRATIVE: CASE EVENT DATE: 20211201
